FAERS Safety Report 12630401 (Version 1)
Quarter: 2016Q3

REPORT INFORMATION
  Report Type: Spontaneous
  Country: IE (occurrence: IE)
  Receive Date: 20160808
  Receipt Date: 20160808
  Transmission Date: 20161109
  Serious: Yes (Hospitalization, Disabling, Other)
  Sender: FDA-Public Use
  Company Number: IE-FERRINGPH-2016FE03455

PATIENT

DRUGS (11)
  1. SERTRALINE                         /01011402/ [Concomitant]
     Active Substance: SERTRALINE HYDROCHLORIDE
     Indication: DEPRESSION
     Dosage: 200 MG
     Route: 065
     Dates: start: 20160403
  2. MIRTAZAPINE. [Concomitant]
     Active Substance: MIRTAZAPINE
     Indication: DEPRESSION
     Dosage: 30 MG
     Route: 065
     Dates: start: 20160201
  3. NORDURINE [Suspect]
     Active Substance: DESMOPRESSIN ACETATE
     Indication: NOCTURIA
     Dosage: NOCTE
     Route: 065
     Dates: start: 20151101, end: 20160710
  4. SINEMET PLUS [Concomitant]
     Active Substance: CARBIDOPA\LEVODOPA
     Indication: PARKINSON^S DISEASE
     Dosage: 3 TABLETS
     Route: 065
     Dates: start: 20160501
  5. THIAMINE. [Concomitant]
     Active Substance: THIAMINE
     Indication: ALCOHOL ABUSE
     Route: 065
     Dates: start: 20160609
  6. MIRTAZAPINE. [Concomitant]
     Active Substance: MIRTAZAPINE
     Indication: ANXIETY
  7. SLOW SODIUM [Concomitant]
     Indication: BLOOD SODIUM DECREASED
     Route: 065
     Dates: start: 20160612
  8. SERTRALINE                         /01011402/ [Concomitant]
     Active Substance: SERTRALINE HYDROCHLORIDE
     Indication: ANXIETY
  9. PERINDOPRIL [Concomitant]
     Active Substance: PERINDOPRIL
     Indication: HYPERTENSION
     Dosage: 5 MG
     Route: 065
     Dates: start: 20150515
  10. ASPIRIN                            /00002701/ [Concomitant]
     Active Substance: ASPIRIN
     Indication: ANGIOPATHY
     Dosage: 75 MG
     Route: 065
     Dates: start: 20150101
  11. ZOLPIDEM [Concomitant]
     Active Substance: ZOLPIDEM\ZOLPIDEM TARTRATE
     Indication: SEDATIVE THERAPY
     Route: 065
     Dates: start: 20150501

REACTIONS (6)
  - Vomiting [Unknown]
  - Gait disturbance [Unknown]
  - Abdominal pain [Unknown]
  - Confusional state [Unknown]
  - Hyponatraemia [Unknown]
  - Weight decreased [Unknown]

NARRATIVE: CASE EVENT DATE: 20160627
